FAERS Safety Report 8478061-2 (Version None)
Quarter: 2012Q2

REPORT INFORMATION
  Report Type: 
  Country: None (occurrence: None)
  Receive Date: 20120622
  Receipt Date: 20120607
  Transmission Date: 20120825
  Serious: Yes (Congenital Anomaly)
  Sender: FDA-Public Use
  Company Number: ADR-UNK-063

PATIENT
  Age: 1 Day
  Sex: Male
  Weight: 7.5398 kg

DRUGS (2)
  1. LAMIVUDINE/ZIDOVUDINE [Suspect]
     Indication: ACQUIRED IMMUNODEFICIENCY SYNDROME
     Dosage: 2 TAB/CAPS + ORAL
     Route: 048
     Dates: start: 20110225
  2. LOPINAVIR+RITONAVIR (KALETRA, ALUVIA, LPV/R) [Concomitant]

REACTIONS (2)
  - MATERNAL DRUGS AFFECTING FOETUS [None]
  - CONGENITAL ANOMALY [None]
